FAERS Safety Report 12953102 (Version 1)
Quarter: 2016Q4

REPORT INFORMATION
  Report Type: Spontaneous
  Country: FR (occurrence: FR)
  Receive Date: 20161117
  Receipt Date: 20161117
  Transmission Date: 20170207
  Serious: Yes (Hospitalization)
  Sender: FDA-Public Use
  Company Number: FR-ASTRAZENECA-2016SF19719

PATIENT
  Age: 21873 Day
  Sex: Female

DRUGS (8)
  1. LEPTICUR [Concomitant]
     Active Substance: TROPATEPINE HYDROCHLORIDE
     Dates: end: 20161001
  2. ACUPAN [Suspect]
     Active Substance: NEFOPAM HYDROCHLORIDE
     Route: 048
     Dates: end: 20161001
  3. SULFARLEM [Concomitant]
     Active Substance: ANETHOLTRITHION
  4. THERALENE [Suspect]
     Active Substance: TRIMEPRAZINE
     Route: 048
     Dates: end: 20161001
  5. SIMVASTATINE [Concomitant]
     Active Substance: SIMVASTATIN
  6. XEROQUEL [Suspect]
     Active Substance: QUETIAPINE FUMARATE
     Route: 048
     Dates: start: 2012, end: 20161001
  7. LOGIMAX [Concomitant]
     Active Substance: FELODIPINE\METOPROLOL SUCCINATE
     Dosage: SR MG/47.5MG
  8. XANAX [Suspect]
     Active Substance: ALPRAZOLAM
     Route: 048
     Dates: end: 20161001

REACTIONS (6)
  - Alcohol withdrawal syndrome [Unknown]
  - Encephalopathy [Recovered/Resolved]
  - Confusional state [Unknown]
  - Overdose [Unknown]
  - Eating disorder [Unknown]
  - Anxiety [Unknown]

NARRATIVE: CASE EVENT DATE: 20160930
